FAERS Safety Report 24580761 (Version 1)
Quarter: 2024Q4

REPORT INFORMATION
  Report Type: Report from Study
  Country: DE (occurrence: DE)
  Receive Date: 20241105
  Receipt Date: 20241105
  Transmission Date: 20250114
  Serious: Yes (Hospitalization)
  Sender: ABBVIE
  Company Number: DE-ABBVIE-5986373

PATIENT
  Sex: Female
  Weight: 130 kg

DRUGS (3)
  1. SKYRIZI [Suspect]
     Active Substance: RISANKIZUMAB-RZAA
     Indication: Psoriatic arthropathy
     Dosage: STRENGTH TEXT: 150 MG
     Route: 058
     Dates: start: 20220103
  2. SKYRIZI [Suspect]
     Active Substance: RISANKIZUMAB-RZAA
     Indication: Psoriasis
  3. DIENOGEST\ESTRADIOL VALERATE [Concomitant]
     Active Substance: DIENOGEST\ESTRADIOL VALERATE
     Indication: Contraception

REACTIONS (4)
  - Radius fracture [Recovered/Resolved]
  - Fracture displacement [Recovered/Resolved]
  - Arthroscopy [Recovered/Resolved]
  - Joint dislocation [Recovered/Resolved]

NARRATIVE: CASE EVENT DATE: 20221230
